FAERS Safety Report 18427911 (Version 1)
Quarter: 2020Q4

REPORT INFORMATION
  Report Type: Spontaneous
  Country: PR (occurrence: PR)
  Receive Date: 20201026
  Receipt Date: 20201026
  Transmission Date: 20210114
  Serious: No
  Sender: FDA-Public Use
  Company Number: PR-ABBVIE-20K-131-3317686-00

PATIENT
  Age: 35 Year
  Sex: Female

DRUGS (2)
  1. LUPRON DEPOT [Suspect]
     Active Substance: LEUPROLIDE ACETATE
     Indication: VAGINAL HAEMORRHAGE
  2. LUPRON DEPOT [Suspect]
     Active Substance: LEUPROLIDE ACETATE
     Indication: FIBROMA
     Route: 065
     Dates: start: 2019, end: 201909

REACTIONS (9)
  - Dysphagia [Unknown]
  - Rheumatoid arthritis [Unknown]
  - Weight decreased [Unknown]
  - Skin disorder [Unknown]
  - Hepatic enzyme increased [Unknown]
  - Scleroderma [Recovering/Resolving]
  - Peripheral swelling [Unknown]
  - Mixed connective tissue disease [Unknown]
  - Infertility [Unknown]
